FAERS Safety Report 14240298 (Version 1)
Quarter: 2017Q4

REPORT INFORMATION
  Report Type: Spontaneous
  Country: US (occurrence: US)
  Receive Date: 20171129
  Receipt Date: 20171129
  Transmission Date: 20180321
  Serious: Yes (Death)
  Sender: FDA-Public Use
  Company Number: None

PATIENT
  Age: 67 Year
  Sex: Female

DRUGS (4)
  1. CARBIDOPA/LEVODOPA [Concomitant]
     Active Substance: CARBIDOPA\LEVODOPA
  2. ELIQUIS [Suspect]
     Active Substance: APIXABAN
     Indication: ATRIAL FIBRILLATION
     Route: 048
  3. METOPROLOL TARTRATE. [Concomitant]
     Active Substance: METOPROLOL TARTRATE
  4. DONEPEZIL. [Concomitant]
     Active Substance: DONEPEZIL

REACTIONS (6)
  - Hypotension [None]
  - Cardio-respiratory arrest [None]
  - Cough [None]
  - Atrial fibrillation [None]
  - Haemoptysis [None]
  - International normalised ratio increased [None]

NARRATIVE: CASE EVENT DATE: 20171031
